FAERS Safety Report 8772884 (Version 4)
Quarter: 2012Q4

REPORT INFORMATION
  Report Type: 
  Country: US (occurrence: US)
  Receive Date: 20120907
  Receipt Date: 20121030
  Transmission Date: 20130627
  Serious: Yes (Other)
  Sender: FDA-Public Use
  Company Number: US-009507513-1209USA002204

PATIENT
  Age: 57 None
  Sex: Female

DRUGS (6)
  1. PEGINTRON [Suspect]
     Indication: HEPATITIS C
     Dosage: 80 Microgram, UNK
     Route: 058
     Dates: start: 20120818
  2. PEGINTRON [Suspect]
     Dosage: 64 Microgram, UNK
     Route: 058
     Dates: end: 20121012
  3. REBETOL [Suspect]
     Indication: HEPATITIS C
     Dosage: UNK
     Route: 048
     Dates: start: 20120818
  4. REBETOL [Suspect]
     Dosage: 200 mg, bid
     Route: 048
     Dates: end: 20121012
  5. TELAPREVIR [Suspect]
     Indication: HEPATITIS C
     Dosage: UNK
     Dates: start: 20120818, end: 20121012
  6. INSULIN [Concomitant]
     Indication: TYPE 1 DIABETES MELLITUS

REACTIONS (6)
  - Transfusion [Unknown]
  - Hallucination [Unknown]
  - Red blood cell count decreased [Unknown]
  - Skin ulcer [Unknown]
  - Pain [Unknown]
  - Drug ineffective [Unknown]
